FAERS Safety Report 7587980-0 (Version None)
Quarter: 2011Q3

REPORT INFORMATION
  Report Type: 
  Country: None (occurrence: None)
  Receive Date: 20110705
  Receipt Date: 20110628
  Transmission Date: 20111222
  Serious: No
  Sender: FDA-Public Use
  Company Number: US-PFIZER INC-2011104366

PATIENT
  Sex: Male

DRUGS (1)
  1. ZYVOX [Suspect]
     Indication: INFECTION
     Dosage: 600 MG, Q12
     Route: 042
     Dates: start: 20110512, end: 20110516

REACTIONS (2)
  - ERYTHEMA [None]
  - EXTRAVASATION [None]
